FAERS Safety Report 7511055-X (Version None)
Quarter: 2011Q2

REPORT INFORMATION
  Report Type: 
  Country: None (occurrence: None)
  Receive Date: 20110531
  Receipt Date: 20110522
  Transmission Date: 20111010
  Serious: Yes (Other)
  Sender: FDA-Public Use
  Company Number: US-BRACCO-004885

PATIENT
  Sex: Male
  Weight: 81.82 kg

DRUGS (38)
  1. CONTRAST MEDIA [Suspect]
     Indication: ANGIOGRAM
     Dates: start: 20050304, end: 20050304
  2. NEURONTIN [Concomitant]
  3. INDERAL [Concomitant]
  4. OMNISCAN [Suspect]
     Indication: ANGIOGRAM
     Dates: start: 20040504, end: 20040504
  5. COZAAR [Concomitant]
  6. DIOVAN [Concomitant]
  7. MAGNEVIST [Suspect]
     Indication: NUCLEAR MAGNETIC RESONANCE IMAGING ABDOMINAL
     Dates: start: 20050304, end: 20050304
  8. PLAVIX [Concomitant]
  9. JANUVIA [Concomitant]
  10. ALL OTHER THERAPEUTIC PRODUCTS [Concomitant]
  11. CONTRAST MEDIA [Suspect]
     Indication: CARDIAC FAILURE CONGESTIVE
     Dates: start: 20031010, end: 20031010
  12. CONTRAST MEDIA [Suspect]
     Indication: RENAL ARTERY STENOSIS
     Dates: start: 20031010, end: 20031010
  13. CONTRAST MEDIA [Suspect]
     Dates: start: 20031010, end: 20031010
  14. MAGNEVIST [Suspect]
     Indication: NUCLEAR MAGNETIC RESONANCE IMAGING
     Dates: start: 20040504, end: 20040504
  15. NOVOLOG [Concomitant]
     Dosage: DOSE: 70/30
  16. FERROUS SULFATE TAB [Concomitant]
  17. COREG [Concomitant]
  18. LIPITOR [Concomitant]
  19. ARANESP [Concomitant]
  20. ACTOS [Concomitant]
  21. ASPIRIN [Concomitant]
  22. CELLCEPT [Concomitant]
  23. LASIX [Concomitant]
  24. GABAPENTIN [Concomitant]
  25. ASPIRIN [Concomitant]
  26. IMDUR [Concomitant]
  27. CONTRAST MEDIA [Suspect]
     Indication: RENAL FAILURE CHRONIC
     Dates: start: 20031010, end: 20031010
  28. CONTRAST MEDIA [Suspect]
     Indication: NUCLEAR MAGNETIC RESONANCE IMAGING
     Dates: start: 20031010, end: 20031010
  29. PROHANCE [Suspect]
     Indication: NUCLEAR MAGNETIC RESONANCE IMAGING BRAIN
     Dates: start: 20031116, end: 20031116
  30. PROHANCE [Suspect]
     Indication: ANGIOGRAM
     Dates: start: 20031116, end: 20031116
  31. RANEXA [Concomitant]
  32. RENAGEL [Concomitant]
  33. NEPHROVITE [Concomitant]
  34. PREDNISONE [Concomitant]
  35. CONTRAST MEDIA [Suspect]
     Indication: CORONARY ARTERY DISEASE
     Dates: start: 20031010, end: 20031010
  36. PROGRAF [Concomitant]
  37. OMNISCAN [Suspect]
     Indication: NUCLEAR MAGNETIC RESONANCE IMAGING
     Dates: start: 20030402
  38. ALLOPURINOL [Concomitant]

REACTIONS (1)
  - NEPHROGENIC SYSTEMIC FIBROSIS [None]
